FAERS Safety Report 6763067-1 (Version None)
Quarter: 2010Q2

REPORT INFORMATION
  Report Type: 
  Country: None (occurrence: None)
  Receive Date: 20100609
  Receipt Date: 20100528
  Transmission Date: 20101027
  Serious: Yes (Other)
  Sender: FDA-Public Use
  Company Number: PHHY2010PK33414

PATIENT
  Sex: Female
  Weight: 65 kg

DRUGS (6)
  1. ACLASTA [Suspect]
     Indication: OSTEOPOROSIS
     Dosage: 5 MG/100ML
     Dates: start: 20080318
  2. ACLASTA [Suspect]
     Dosage: 5 MG/100 ML
     Dates: start: 20090519
  3. CALCIUM CARBONATE [Concomitant]
  4. VITAMIN D [Concomitant]
  5. LEVOTHYROXINE SODIUM [Concomitant]
     Dosage: 100 MICROGRAMS
  6. DIURETICS [Concomitant]

REACTIONS (1)
  - TIBIA FRACTURE [None]
